FAERS Safety Report 5341657-0 (Version None)
Quarter: 2007Q2

REPORT INFORMATION
  Report Type: 
  Country: None (occurrence: None)
  Receive Date: 20070530
  Receipt Date: 20070524
  Transmission Date: 20071010
  Serious: Yes (Death)
  Sender: FDA-Public Use
  Company Number: 2007-159055-NL

PATIENT
  Age: 75 Year
  Sex: Male

DRUGS (6)
  1. MIRTAZAPINE [Suspect]
     Dosage: 45 MG, ORAL
     Route: 048
     Dates: start: 20070410, end: 20070429
  2. ESCITALOPRAM OXALATE [Suspect]
     Dosage: 35 MG, ORAL
     Route: 048
     Dates: start: 20070312, end: 20070429
  3. BROMAZEPAM [Suspect]
     Dosage: 30 MG, ORAL
     Route: 048
     Dates: start: 20061218, end: 20070429
  4. COSAAR PLUS [Concomitant]
  5. PANTOPRAZOLE SODIUM [Concomitant]
  6. YEAST DRIED [Concomitant]

REACTIONS (2)
  - COMPLETED SUICIDE [None]
  - SKIN LACERATION [None]
